FAERS Safety Report 12260942 (Version 1)
Quarter: 2016Q2

REPORT INFORMATION
  Report Type: Spontaneous
  Country: US (occurrence: US)
  Receive Date: 20160412
  Receipt Date: 20160412
  Transmission Date: 20160815
  Serious: No
  Sender: FDA-Public Use
  Company Number: US-INCYTE CORPORATION-2016IN000523

PATIENT
  Age: 75 Year
  Sex: Female

DRUGS (1)
  1. JAKAFI [Suspect]
     Active Substance: RUXOLITINIB
     Indication: MYELOFIBROSIS
     Dosage: 20 MG, QD
     Route: 048
     Dates: start: 20130127

REACTIONS (6)
  - Asthenia [Unknown]
  - Sleep apnoea syndrome [Unknown]
  - Gastric ulcer [Unknown]
  - White blood cell count decreased [Unknown]
  - Anaemia [Unknown]
  - Meniscus injury [Unknown]

NARRATIVE: CASE EVENT DATE: 20160127
